FAERS Safety Report 7498980-3 (Version None)
Quarter: 2011Q2

REPORT INFORMATION
  Report Type: 
  Country: None (occurrence: None)
  Receive Date: 20110524
  Receipt Date: 20081016
  Transmission Date: 20111010
  Serious: Yes (Other)
  Sender: FDA-Public Use
  Company Number: US-BAYER-200836229NA

PATIENT
  Age: 47 Year
  Sex: Male
  Weight: 90 kg

DRUGS (21)
  1. TRASYLOL [Suspect]
     Indication: SURGERY
     Dosage: 1 ML INITIAL DOSE
     Route: 042
     Dates: start: 20061130, end: 20061130
  2. AMIODARONE HCL [Concomitant]
     Dosage: 200 MG, QD
     Route: 048
  3. FOLATE SODIUM [Concomitant]
     Dosage: 1 MG, QD
     Route: 048
     Dates: start: 20060324
  4. PLASMA [Concomitant]
     Dosage: 4 U, UNK
     Route: 042
     Dates: start: 20061130
  5. PLATELETS [Concomitant]
     Dosage: 8 U, UNK
     Route: 042
     Dates: start: 20061130
  6. FENTANYL [Concomitant]
     Dosage: 6150 MICROGRAM
     Route: 042
     Dates: start: 20061130, end: 20061130
  7. DIGOXIN [Concomitant]
     Dosage: 0.25 MG
     Route: 048
     Dates: start: 20060919
  8. NITROGLYCERIN [Concomitant]
     Dosage: 20 MCG
     Route: 042
     Dates: start: 20061129, end: 20061130
  9. COUMADIN [Concomitant]
     Dosage: 5 MG, QD
     Route: 048
     Dates: start: 20060630
  10. LASIX [Concomitant]
     Dosage: 40 MG EVERY MORNING
     Route: 048
     Dates: start: 20060207
  11. LASIX [Concomitant]
     Dosage: 40 MG
     Route: 042
     Dates: start: 20061130, end: 20061130
  12. MILRINONE [Concomitant]
     Dosage: 80 MG
     Route: 042
     Dates: start: 20061130, end: 20061202
  13. HEPARIN [Concomitant]
     Dosage: 38,000 UNITS
     Route: 042
     Dates: start: 20061130, end: 20061130
  14. RED BLOOD CELLS [Concomitant]
     Dosage: 1 U, UNK
     Route: 042
     Dates: start: 20061130
  15. CAPOTEN [Concomitant]
     Dosage: 25 MG, TID
     Route: 048
     Dates: start: 20060824
  16. CEFAZOLIN [Concomitant]
     Dosage: 2000 MG
     Route: 042
     Dates: start: 20061130, end: 20061130
  17. TRASYLOL [Suspect]
     Indication: HEART TRANSPLANT
     Dosage: 200 ML LOADING DOSE FOLLOWED BY UNSPECIFIED INFUSION
     Route: 042
     Dates: start: 20061130, end: 20061130
  18. ZOLOFT [Concomitant]
     Dosage: 100 MG, QD
     Route: 048
     Dates: start: 20060412
  19. METHYLPREDNISOLONE [Concomitant]
     Dosage: 700 MG
     Route: 042
     Dates: start: 20061130, end: 20061130
  20. PREDNISONE [Concomitant]
     Dosage: 15 MG EVERY 48 HOURS
     Route: 048
     Dates: start: 19950608
  21. VASOPRESSIN [Concomitant]
     Dosage: 7.99 UNITS
     Route: 042
     Dates: start: 20061129, end: 20061130

REACTIONS (13)
  - PAIN [None]
  - RENAL IMPAIRMENT [None]
  - STRESS [None]
  - ANXIETY [None]
  - ANHEDONIA [None]
  - DEPRESSION [None]
  - INJURY [None]
  - RENAL INJURY [None]
  - UNEVALUABLE EVENT [None]
  - FEAR [None]
  - RENAL FAILURE [None]
  - EMOTIONAL DISTRESS [None]
  - RENAL FAILURE CHRONIC [None]
